FAERS Safety Report 5449942-9 (Version None)
Quarter: 2007Q3

REPORT INFORMATION
  Report Type: 
  Country: None (occurrence: None)
  Receive Date: 20070912
  Receipt Date: 20070905
  Transmission Date: 20080115
  Serious: Yes (Other)
  Sender: FDA-Public Use
  Company Number: JP-BRISTOL-MYERS SQUIBB COMPANY-13878509

PATIENT
  Age: 73 Year
  Sex: Female

DRUGS (5)
  1. ENDOXAN [Suspect]
     Indication: ANTI-NEUTROPHIL CYTOPLASMIC ANTIBODY POSITIVE VASCULITIS
     Dates: start: 20061201
  2. ENDOXAN [Suspect]
     Indication: PULMONARY ALVEOLAR HAEMORRHAGE
     Dates: start: 20061201
  3. BAKTAR [Suspect]
     Indication: PNEUMOCYSTIS JIROVECI PNEUMONIA
     Dosage: RESTARTED AGAIN FROM 03-MAY-2007 TO 19-MAY-2007.TOTAL THERAPY DURATION TIME WAS 151DAYS.
     Route: 048
     Dates: start: 20061220, end: 20070519
  4. PREDONINE [Concomitant]
     Dates: start: 20061220
  5. GANCICLOVIR [Concomitant]
     Dates: start: 20070101

REACTIONS (2)
  - NEUTROPHIL PELGER-HUET ANOMALY PRESENT [None]
  - RED BLOOD CELL MORPHOLOGY ABNORMAL [None]
